FAERS Safety Report 6688443-7 (Version None)
Quarter: 2010Q2

REPORT INFORMATION
  Report Type: 
  Country: None (occurrence: None)
  Receive Date: 20100420
  Receipt Date: 20100412
  Transmission Date: 20101027
  Serious: Yes (Death)
  Sender: FDA-Public Use
  Company Number: IN-ELI_LILLY_AND_COMPANY-IN201004002764

PATIENT
  Sex: Male
  Weight: 42 kg

DRUGS (10)
  1. PEMETREXED [Suspect]
     Indication: NON-SMALL CELL LUNG CANCER
     Dosage: 500 MG/M2, DAY 1 EVERY 21 DAYS
     Route: 042
     Dates: start: 20100217
  2. CISPLATIN [Suspect]
     Indication: NON-SMALL CELL LUNG CANCER
     Dosage: 75 MG/M2, DAY 1 EVERY 21 DAYS
     Route: 042
     Dates: start: 20100217
  3. FOLIC ACID [Concomitant]
     Indication: PROPHYLAXIS
     Dates: start: 20100212
  4. VITAMIN B-12 [Concomitant]
     Indication: PROPHYLAXIS
     Dates: start: 20100212, end: 20100212
  5. DEXAMETHASONE [Concomitant]
     Indication: PROPHYLAXIS
     Dates: start: 20100331, end: 20100402
  6. LINCTUS CODEINE [Concomitant]
     Indication: COUGH
     Dates: start: 20100212
  7. PARACETAMOL WITH CODEINE PHOSPHATE [Concomitant]
     Indication: PAIN
     Dates: start: 20100212
  8. DOMPERIDONE [Concomitant]
     Indication: PROPHYLAXIS
     Dates: start: 20100401, end: 20100405
  9. LORAZEPAM [Concomitant]
     Indication: PROPHYLAXIS
     Dates: start: 20100401, end: 20100405
  10. IRON SUCROSE [Concomitant]
     Indication: ANAEMIA
     Dates: start: 20100403, end: 20100403

REACTIONS (1)
  - SUDDEN DEATH [None]
